FAERS Safety Report 6086933-1 (Version None)
Quarter: 2009Q1

REPORT INFORMATION
  Report Type: 
  Country: None (occurrence: None)
  Receive Date: 20090217
  Receipt Date: 20080617
  Transmission Date: 20090719
  Serious: Yes (Other)
  Sender: FDA-Public Use
  Company Number: MC200800279

PATIENT
  Sex: Male

DRUGS (1)
  1. ANGIOMAX [Suspect]

REACTIONS (1)
  - HAEMORRHAGE [None]
